FAERS Safety Report 19102597 (Version 1)
Quarter: 2021Q2

REPORT INFORMATION
  Report Type: Spontaneous
  Country: US (occurrence: US)
  Receive Date: 20210407
  Receipt Date: 20210407
  Transmission Date: 20210717
  Serious: Yes (Death)
  Sender: FDA-Public Use
  Company Number: None

PATIENT
  Age: 30 Year
  Sex: Male
  Weight: 112 kg

DRUGS (1)
  1. 5?FLUOROURACIL [Suspect]
     Active Substance: FLUOROURACIL

REACTIONS (15)
  - Mucosal inflammation [None]
  - Acute kidney injury [None]
  - Coma hepatic [None]
  - Nausea [None]
  - Coagulopathy [None]
  - Liver injury [None]
  - Gastrointestinal haemorrhage [None]
  - Toxicity to various agents [None]
  - Dihydropyrimidine dehydrogenase deficiency [None]
  - Vomiting [None]
  - Liver function test increased [None]
  - Pancytopenia [None]
  - Abdominal pain [None]
  - Acute hepatic failure [None]
  - General physical health deterioration [None]

NARRATIVE: CASE EVENT DATE: 20201201
